FAERS Safety Report 9187558 (Version 1)
Quarter: 2013Q1

REPORT INFORMATION
  Report Type: Spontaneous
  Country: US (occurrence: US)
  Receive Date: 20130325
  Receipt Date: 20130325
  Transmission Date: 20140127
  Serious: Yes (Hospitalization)
  Sender: FDA-Public Use
  Company Number: US-ASTRAZENECA-2013SE18202

PATIENT
  Age: 662 Month
  Sex: Female
  Weight: 86.2 kg

DRUGS (13)
  1. NEXIUM [Suspect]
     Indication: GASTROOESOPHAGEAL REFLUX DISEASE
     Route: 048
  2. LISINOPRIL [Suspect]
  3. HYDROCODONE [Concomitant]
  4. NASONEX [Concomitant]
  5. LASIX [Concomitant]
  6. REQUIP [Concomitant]
  7. NEURONTIN [Concomitant]
  8. SYNTHROID [Concomitant]
  9. SENOCOT [Concomitant]
  10. MIRALAX [Concomitant]
  11. VIT B [Concomitant]
  12. VIT E [Concomitant]
  13. POTASSIUM [Concomitant]

REACTIONS (1)
  - Ankle fracture [Recovering/Resolving]
